FAERS Safety Report 24087397 (Version 1)
Quarter: 2024Q3

REPORT INFORMATION
  Report Type: Spontaneous
  Country: GB (occurrence: GB)
  Receive Date: 20240714
  Receipt Date: 20240714
  Transmission Date: 20241017
  Serious: Yes (Other)
  Sender: TORRENT
  Company Number: None

PATIENT
  Age: 7 Year
  Sex: Male
  Weight: 63 kg

DRUGS (4)
  1. LAMOTRIGINE [Suspect]
     Active Substance: LAMOTRIGINE
     Indication: Epilepsy
     Dosage: 75MG TWICE DAILY
     Route: 065
     Dates: start: 20231219, end: 20240422
  2. CLOBETASONE [Concomitant]
     Active Substance: CLOBETASONE
     Indication: Product used for unknown indication
     Dosage: UNKNOWN
     Route: 065
     Dates: start: 20211112
  3. ISOPROPYL MYRISTATE\MINERAL OIL [Concomitant]
     Active Substance: ISOPROPYL MYRISTATE\MINERAL OIL
     Indication: Product used for unknown indication
     Dosage: UNKNOWN
     Route: 065
     Dates: start: 20201105
  4. MINERAL OIL\PETROLATUM\WAX, EMULSIFYING [Concomitant]
     Active Substance: MINERAL OIL\PETROLATUM\WAX, EMULSIFYING
     Indication: Product used for unknown indication
     Dosage: UNKNOWN
     Route: 065
     Dates: start: 20211112

REACTIONS (2)
  - Rash erythematous [Recovering/Resolving]
  - Eczema [Unknown]

NARRATIVE: CASE EVENT DATE: 20240415
